FAERS Safety Report 8361876-9 (Version None)
Quarter: 2012Q2

REPORT INFORMATION
  Report Type: 
  Country: None (occurrence: None)
  Receive Date: 20120515
  Receipt Date: 20120508
  Transmission Date: 20120825
  Serious: Yes (Hospitalization)
  Sender: FDA-Public Use
  Company Number: US-JNJFOC-20120507850

PATIENT
  Age: 80 Year
  Sex: Female

DRUGS (1)
  1. XARELTO [Suspect]
     Indication: ATRIAL FIBRILLATION
     Route: 048
     Dates: start: 20120101, end: 20120501

REACTIONS (3)
  - CARDIAC FAILURE CONGESTIVE [None]
  - INTERNATIONAL NORMALISED RATIO ABNORMAL [None]
  - RENAL DISORDER [None]
